FAERS Safety Report 8818432 (Version 1)
Quarter: 2012Q4

REPORT INFORMATION
  Report Type: 
  Country: NL (occurrence: NL)
  Receive Date: 20121001
  Receipt Date: 20121001
  Transmission Date: 20130627
  Serious: Yes (Congenital Anomaly, Other)
  Sender: FDA-Public Use
  Company Number: NL-ELI_LILLY_AND_COMPANY-NL201209006551

PATIENT
  Age: 77 Year
  Sex: Male
  Weight: 80 kg

DRUGS (11)
  1. FORSTEO [Suspect]
     Indication: OSTEOPOROSIS
     Dosage: 20 ug, qd
     Route: 058
     Dates: start: 20120827
  2. ACETYLSALICYLIC ACID [Concomitant]
     Dosage: 80 mg, qd
     Route: 048
  3. ATORVASTATIN [Concomitant]
     Indication: BLOOD CHOLESTEROL INCREASED
     Dosage: 10 mg, qd
     Route: 048
     Dates: start: 2008
  4. CALCIUM CARBONATE W/COLECALCIFEROL [Concomitant]
     Indication: OSTEOPOROSIS
     Dosage: UNK UNK, qd
     Route: 048
     Dates: start: 2011
  5. FOLIC ACID [Concomitant]
     Indication: AUTOIMMUNE DISORDER
     Dosage: 5 mg, unknown
     Route: 048
  6. METHOTREXATE [Concomitant]
     Indication: AUTOIMMUNE DISORDER
     Dosage: 2.5 mg, unknown
     Route: 048
  7. NIFEDIPINE [Concomitant]
     Indication: HYPERTENSION
     Dosage: 30 mg, qd
     Route: 048
     Dates: start: 2011
  8. OMEPRAZOL [Concomitant]
     Indication: GASTROINTESTINAL DISORDER
     Dosage: 40 mg, qd
     Route: 048
  9. PREDNISONE [Concomitant]
     Dosage: 5 mg, qd
     Route: 048
  10. RAMIPRIL [Concomitant]
     Indication: HYPERTENSION
     Dosage: 2.5 mg, qd
     Route: 048
     Dates: start: 2002
  11. TIMOLOL [Concomitant]
     Indication: GLAUCOMA
     Dosage: 5 mg, qd
     Route: 047
     Dates: start: 2004

REACTIONS (8)
  - Amyotrophic lateral sclerosis [Unknown]
  - Catheterisation cardiac [Unknown]
  - Abdominal mass [Not Recovered/Not Resolved]
  - Mass [Not Recovered/Not Resolved]
  - Rash maculo-papular [Not Recovered/Not Resolved]
  - Neck pain [Not Recovered/Not Resolved]
  - Pruritus [Not Recovered/Not Resolved]
  - Skin irritation [Recovering/Resolving]
